FAERS Safety Report 9169880 (Version 1)
Quarter: 2013Q1

REPORT INFORMATION
  Report Type: Spontaneous
  Country: US (occurrence: US)
  Receive Date: 20130319
  Receipt Date: 20130319
  Transmission Date: 20140127
  Serious: No
  Sender: FDA-Public Use
  Company Number: US-009507513-1303USA008505

PATIENT
  Age: 45 Year
  Sex: Female

DRUGS (3)
  1. EMEND [Suspect]
     Indication: PROPHYLAXIS OF NAUSEA AND VOMITING
     Dosage: 150 VIAL ONE TIME INFUSION
     Route: 042
     Dates: start: 201303
  2. ALOXI [Concomitant]
  3. DEXAMETHASONE [Concomitant]

REACTIONS (1)
  - Back pain [Recovered/Resolved]
